FAERS Safety Report 17160894 (Version 1)
Quarter: 2019Q4

REPORT INFORMATION
  Report Type: Spontaneous
  Country: US (occurrence: US)
  Receive Date: 20191216
  Receipt Date: 20191216
  Transmission Date: 20200122
  Serious: No
  Sender: FDA-Public Use
  Company Number: US-KVK-TECH, INC-2077866

PATIENT
  Sex: Male

DRUGS (1)
  1. OXYCODONE HYDROCHLORIDE. [Suspect]
     Active Substance: OXYCODONE HYDROCHLORIDE
     Indication: PRODUCT USED FOR UNKNOWN INDICATION
     Route: 065

REACTIONS (6)
  - Constipation [Unknown]
  - Feeling abnormal [Unknown]
  - Weight increased [Unknown]
  - Abdominal discomfort [Unknown]
  - Drug ineffective [Unknown]
  - Frequent bowel movements [Unknown]
